FAERS Safety Report 8346582-9 (Version None)
Quarter: 2012Q2

REPORT INFORMATION
  Report Type: 
  Country: None (occurrence: None)
  Receive Date: 20120507
  Receipt Date: 20120507
  Transmission Date: 20120825
  Serious: No
  Sender: FDA-Public Use
  Company Number: None

PATIENT
  Age: 55 Year
  Sex: Male
  Weight: 80.6 kg

DRUGS (1)
  1. BOCEPREVIR [Suspect]
     Indication: HEPATITIS C
     Dosage: MG PO
     Route: 048
     Dates: start: 20120229

REACTIONS (5)
  - DYSGEUSIA [None]
  - PRURITUS [None]
  - DYSPNOEA [None]
  - THIRST [None]
  - URTICARIA [None]
